FAERS Safety Report 8247772-6 (Version None)
Quarter: 2012Q1

REPORT INFORMATION
  Report Type: 
  Country: None (occurrence: None)
  Receive Date: 20120330
  Receipt Date: 20120322
  Transmission Date: 20120608
  Serious: Yes (Life-Threatening, Hospitalization)
  Sender: FDA-Public Use
  Company Number: IT-MILLENNIUM PHARMACEUTICALS, INC.-2012-02112

PATIENT

DRUGS (5)
  1. SPORANOX [Concomitant]
  2. CYCLOPHOSPHAMIDE MONOHYDRATE [Concomitant]
     Indication: CHEMOTHERAPY
     Dosage: 5 G, UNK
     Dates: start: 20120316, end: 20120316
  3. VELCADE [Suspect]
     Indication: MULTIPLE MYELOMA
     Dosage: 2 MG, UNK
     Route: 042
     Dates: start: 20120315, end: 20120315
  4. ACYCLOVIR [Concomitant]
  5. MESNA [Concomitant]

REACTIONS (2)
  - CARDIAC ARREST [None]
  - SYNCOPE [None]
